FAERS Safety Report 12185211 (Version 2)
Quarter: 2016Q1

REPORT INFORMATION
  Report Type: Report from Study
  Country: US (occurrence: US)
  Receive Date: 20160316
  Receipt Date: 20160318
  Transmission Date: 20160526
  Serious: Yes (Hospitalization)
  Sender: FDA-Public Use
  Company Number: US-ABBVIE-16K-163-1580983-00

PATIENT
  Age: 36 Year
  Sex: Male

DRUGS (1)
  1. HUMIRA [Suspect]
     Active Substance: ADALIMUMAB
     Indication: CROHN^S DISEASE
     Route: 058
     Dates: start: 20150828, end: 20160218

REACTIONS (6)
  - Nausea [Recovered/Resolved]
  - Small intestinal obstruction [Recovered/Resolved]
  - Small intestinal stenosis [Unknown]
  - Gastrointestinal stoma output increased [Not Recovered/Not Resolved]
  - Crohn^s disease [Recovered/Resolved]
  - Weight decreased [Recovered/Resolved]

NARRATIVE: CASE EVENT DATE: 201512
